FAERS Safety Report 10251106 (Version 1)
Quarter: 2014Q2

REPORT INFORMATION
  Report Type: Spontaneous
  Country: JP (occurrence: JP)
  Receive Date: 20140620
  Receipt Date: 20140620
  Transmission Date: 20141212
  Serious: Yes (Life-Threatening, Other)
  Sender: FDA-Public Use
  Company Number: JP-ASTRAZENECA-2014SE45246

PATIENT
  Age: 28 Year
  Sex: Male

DRUGS (3)
  1. SEROQUEL [Suspect]
     Dosage: 25 TABLETS OF 25 MILLIGRAMS (625 MILLIGRAMS)
     Route: 048
     Dates: start: 20140604
  2. HYPNOTIC AND SEDATIVE [Concomitant]
  3. ANTI-ANXIETY [Concomitant]

REACTIONS (3)
  - Intentional overdose [Unknown]
  - Suicide attempt [Unknown]
  - Somnolence [Unknown]
